FAERS Safety Report 9285603 (Version 2)
Quarter: 2013Q4

REPORT INFORMATION
  Report Type: Report from Study
  Country: BR (occurrence: BR)
  Receive Date: 20130513
  Receipt Date: 20131105
  Transmission Date: 20140711
  Serious: Yes (Death, Hospitalization)
  Sender: FDA-Public Use
  Company Number: PHHY2013BR046595

PATIENT
  Age: 72 Year
  Sex: Male
  Weight: 60 kg

DRUGS (3)
  1. DIOVAN [Suspect]
     Indication: HYPERTENSION
     Dosage: 2 DF (80 MG), QD
     Route: 048
     Dates: start: 201301
  2. ATENOLOL [Suspect]
     Indication: HYPERTENSION
     Dosage: 2 DF (50 MG), QD
     Route: 048
     Dates: end: 201301
  3. ENALAPRIL [Suspect]
     Indication: HYPERTENSION
     Dosage: 2 DF (10 MG), QD
     Route: 048

REACTIONS (13)
  - Cerebrovascular accident [Fatal]
  - Venous occlusion [Fatal]
  - Syncope [Fatal]
  - Blindness [Fatal]
  - Nervousness [Fatal]
  - Malaise [Fatal]
  - Coma [Fatal]
  - Heart rate increased [Fatal]
  - Pyrexia [Fatal]
  - Cerebral ischaemia [Fatal]
  - Respiratory distress [Fatal]
  - Hypertension [Fatal]
  - Abdominal pain upper [Recovered/Resolved]
